FAERS Safety Report 24337692 (Version 2)
Quarter: 2024Q3

REPORT INFORMATION
  Report Type: Spontaneous
  Country: JP (occurrence: JP)
  Receive Date: 20240919
  Receipt Date: 20240923
  Transmission Date: 20241017
  Serious: No
  Sender: ROCHE
  Company Number: JP-CHUGAI-2023042141

PATIENT
  Age: 5 Year
  Sex: Male
  Weight: 18.0 kg

DRUGS (3)
  1. TAMIFLU [Suspect]
     Active Substance: OSELTAMIVIR PHOSPHATE
     Indication: Influenza
     Dosage: 36 MILLIGRAM, BID
     Route: 048
     Dates: start: 20231122, end: 20231122
  2. TAMIFLU [Suspect]
     Active Substance: OSELTAMIVIR PHOSPHATE
     Dosage: 36 MILLIGRAM, TID
     Route: 048
     Dates: start: 20231123, end: 20231123
  3. TAMIFLU [Suspect]
     Active Substance: OSELTAMIVIR PHOSPHATE
     Dosage: 36 MILLIGRAM
     Route: 048
     Dates: start: 20231124

REACTIONS (3)
  - Abnormal behaviour [Recovered/Resolved]
  - Product prescribing error [Unknown]
  - Accidental overdose [Unknown]

NARRATIVE: CASE EVENT DATE: 20231122
